FAERS Safety Report 9420128 (Version 2)
Quarter: 2013Q4

REPORT INFORMATION
  Report Type: Report from Study
  Country: LB (occurrence: LB)
  Receive Date: 20130725
  Receipt Date: 20131111
  Transmission Date: 20140711
  Serious: Yes (Other)
  Sender: FDA-Public Use
  Company Number: LB-US-EMD SERONO, INC.-7188294

PATIENT
  Age: 39 Year
  Sex: Female
  Weight: 49 kg

DRUGS (4)
  1. GONAL-F [Suspect]
     Indication: INFERTILITY
  2. LUVERIS [Suspect]
     Indication: INFERTILITY
  3. CYCLOGEST [Concomitant]
     Indication: LUTEAL PHASE DEFICIENCY
     Route: 067
     Dates: start: 20121126, end: 20121220
  4. ENOXAPARIN [Concomitant]
     Indication: IMPLANT SITE REACTION
     Route: 058
     Dates: start: 20121126, end: 20121220

REACTIONS (1)
  - Abortion early [Recovered/Resolved]
